FAERS Safety Report 19181993 (Version 1)
Quarter: 2021Q2

REPORT INFORMATION
  Report Type: Spontaneous
  Country: US (occurrence: US)
  Receive Date: 20210427
  Receipt Date: 20210427
  Transmission Date: 20210717
  Serious: No
  Sender: FDA-Public Use
  Company Number: US-BAUSCH-BL-2021-010583

PATIENT
  Sex: Male
  Weight: 95 kg

DRUGS (3)
  1. FLUOROURACIL CREAM 0.5% [Suspect]
     Active Substance: FLUOROURACIL
     Indication: PIGMENTATION DISORDER
     Route: 061
  2. FLUOROURACIL CREAM 0.5% [Suspect]
     Active Substance: FLUOROURACIL
     Indication: NEOPLASM SKIN
  3. ATORVASTATIN [Concomitant]
     Active Substance: ATORVASTATIN
     Indication: PRODUCT USED FOR UNKNOWN INDICATION

REACTIONS (2)
  - Application site dryness [Not Recovered/Not Resolved]
  - Off label use [Unknown]
